FAERS Safety Report 18063150 (Version 1)
Quarter: 2020Q3

REPORT INFORMATION
  Report Type: Spontaneous
  Country: US (occurrence: US)
  Receive Date: 20200723
  Receipt Date: 20200723
  Transmission Date: 20201103
  Serious: Yes (Death, Other)
  Sender: FDA-Public Use
  Company Number: US-PURDUE-USA-2020-0159060

PATIENT
  Age: 56 Year
  Sex: Female

DRUGS (17)
  1. BOTOX [Concomitant]
     Active Substance: ONABOTULINUMTOXINA
     Indication: MUSCLE SPASMS
  2. ATIVAN [Concomitant]
     Active Substance: LORAZEPAM
     Indication: ANXIETY
     Dosage: 1 MG, BID
     Route: 048
  3. OXYCONTIN [Suspect]
     Active Substance: OXYCODONE HYDROCHLORIDE
     Dosage: 50 MG, Q12H
  4. DILAUDID [Suspect]
     Active Substance: HYDROMORPHONE HYDROCHLORIDE
     Dosage: 20 MG, DAILY
     Route: 048
  5. DILAUDID [Suspect]
     Active Substance: HYDROMORPHONE HYDROCHLORIDE
     Indication: NECK PAIN
     Dosage: 8 MG, DAILY
     Route: 048
  6. OXYCODONE HYDROCHLORIDE (SIMILAR TO NDA 22?272) [Suspect]
     Active Substance: OXYCODONE HYDROCHLORIDE
     Indication: BREAKTHROUGH PAIN
     Dosage: 5 MG, BID
     Route: 048
  7. BOTOX [Concomitant]
     Active Substance: ONABOTULINUMTOXINA
     Indication: NECK PAIN
     Dosage: UNKNOWN
     Route: 023
  8. OXYCONTIN [Suspect]
     Active Substance: OXYCODONE HYDROCHLORIDE
     Dosage: 20 MG, TID
     Route: 048
  9. OXYCONTIN [Suspect]
     Active Substance: OXYCODONE HYDROCHLORIDE
     Indication: NECK PAIN
     Dosage: 100 MG, DAILY
     Route: 048
  10. VALIUM [Concomitant]
     Active Substance: DIAZEPAM
     Indication: PRODUCT USED FOR UNKNOWN INDICATION
     Dosage: UNKNOWN
     Route: 065
  11. DOXEPIN [Concomitant]
     Active Substance: DOXEPIN
     Indication: DEPRESSION
     Dosage: 300 MG, DAILY
     Route: 048
  12. DOXEPIN [Concomitant]
     Active Substance: DOXEPIN
     Indication: ANXIETY DISORDER
     Dosage: 300 MG, HS
  13. LIDODERM [Concomitant]
     Active Substance: LIDOCAINE
     Indication: NECK PAIN
     Dosage: UNKNOWN
     Route: 065
  14. LIPITOR [Concomitant]
     Active Substance: ATORVASTATIN CALCIUM
     Indication: PRODUCT USED FOR UNKNOWN INDICATION
     Dosage: UNKNOWN
     Route: 065
  15. HALCION [Concomitant]
     Active Substance: TRIAZOLAM
     Indication: PRODUCT USED FOR UNKNOWN INDICATION
     Dosage: 0.25 MG, HS
     Route: 048
  16. ROBAXIN [Concomitant]
     Active Substance: METHOCARBAMOL
     Indication: PRODUCT USED FOR UNKNOWN INDICATION
     Dosage: UNKNOWN
     Route: 065
  17. ATIVAN [Concomitant]
     Active Substance: LORAZEPAM
     Indication: DEPRESSION

REACTIONS (19)
  - Toxicity to various agents [Fatal]
  - Intentional product misuse [Unknown]
  - Major depression [Unknown]
  - Pain in extremity [Unknown]
  - Anxiety disorder [Unknown]
  - Scoliosis [Unknown]
  - Swelling [Unknown]
  - Muscle spasms [Unknown]
  - Intentional overdose [Fatal]
  - Osteoarthritis [Unknown]
  - Facet joint syndrome [Unknown]
  - Drug dependence [Unknown]
  - Foot fracture [Recovered/Resolved]
  - Intervertebral disc degeneration [Unknown]
  - Somatic symptom disorder [Unknown]
  - Myofascial pain syndrome [Unknown]
  - Completed suicide [Fatal]
  - Neck pain [Unknown]
  - Musculoskeletal stiffness [Unknown]

NARRATIVE: CASE EVENT DATE: 2007
